FAERS Safety Report 15996528 (Version 1)
Quarter: 2019Q1

REPORT INFORMATION
  Report Type: Spontaneous
  Country: US (occurrence: US)
  Receive Date: 20190222
  Receipt Date: 20190222
  Transmission Date: 20190418
  Serious: No
  Sender: FDA-Public Use
  Company Number: US-009507513-1504USA009551

PATIENT
  Age: 50 Year
  Sex: Female
  Weight: 118 kg

DRUGS (1)
  1. CUBICIN [Suspect]
     Active Substance: DAPTOMYCIN
     Indication: CHRONIC SINUSITIS
     Dosage: 500 MG (4.2 MG/KG) EVERY 24 HOURS
     Route: 042
     Dates: start: 20041203, end: 20041203

REACTIONS (2)
  - Chills [Not Recovered/Not Resolved]
  - Dyspnoea [Not Recovered/Not Resolved]

NARRATIVE: CASE EVENT DATE: 20041203
